FAERS Safety Report 8850716 (Version 1)
Quarter: 2012Q4

REPORT INFORMATION
  Report Type: 
  Country: US (occurrence: US)
  Receive Date: 20121019
  Receipt Date: 20121019
  Transmission Date: 20130627
  Serious: Yes (Hospitalization)
  Sender: FDA-Public Use
  Company Number: US-ROCHE-1116013

PATIENT
  Sex: Female

DRUGS (2)
  1. NUTROPIN [Suspect]
     Indication: TURNER^S SYNDROME
     Dosage: 0.6 for 16 days and then 1.2 mg
     Route: 058
     Dates: start: 20080108, end: 20080415
  2. NUTROPIN [Suspect]
     Dosage: 0.6 for 16 days and then 1.2 mg
     Route: 065
     Dates: start: 20080804, end: 200811

REACTIONS (10)
  - Arthritis infective [Unknown]
  - Synovitis [Unknown]
  - Malaise [Unknown]
  - Conjunctivitis [Unknown]
  - Pyrexia [Unknown]
  - Rash [Unknown]
  - Skin exfoliation [Unknown]
  - Urinary tract infection [Recovered/Resolved]
  - Arthralgia [Recovering/Resolving]
  - Arthralgia [Unknown]
